FAERS Safety Report 5338286-1 (Version None)
Quarter: 2007Q2

REPORT INFORMATION
  Report Type: 
  Country: None (occurrence: None)
  Receive Date: 20070530
  Receipt Date: 20070523
  Transmission Date: 20071010
  Serious: Yes (Other)
  Sender: FDA-Public Use
  Company Number: US-AVENTIS-200713760US

PATIENT
  Age: 31 Year
  Sex: Female

DRUGS (3)
  1. LOVENOX [Suspect]
     Dates: start: 20070322
  2. LOVENOX [Suspect]
     Dates: start: 20070501
  3. ^LOT OF MEDICATION^ [Concomitant]
     Dosage: DOSE: UNK

REACTIONS (2)
  - ABORTION SPONTANEOUS [None]
  - DRUG EXPOSURE DURING PREGNANCY [None]
